FAERS Safety Report 7200361-4 (Version None)
Quarter: 2010Q4

REPORT INFORMATION
  Report Type: 
  Country: None (occurrence: None)
  Receive Date: 20101228
  Receipt Date: 20101208
  Transmission Date: 20110411
  Serious: No
  Sender: FDA-Public Use
  Company Number: US-B.I. PHARMACEUTICALS,INC./RIDGEFIELD-2010-BP-14210BP

PATIENT
  Sex: Female

DRUGS (6)
  1. PRADAXA [Suspect]
     Indication: ATRIAL FIBRILLATION
     Dosage: 300 MG
     Route: 048
     Dates: start: 20101101
  2. ATACAND [Concomitant]
     Dosage: 32 MG
     Route: 048
     Dates: start: 20050101
  3. SIMVASTATIN [Concomitant]
     Dosage: 60 MG
     Route: 048
     Dates: start: 20050101
  4. METOPROLOL TARTRATE [Concomitant]
     Dosage: 150 MG
     Route: 048
     Dates: start: 20050101
  5. CLONIDINE [Concomitant]
     Dosage: 0.2 MG
     Route: 048
     Dates: start: 20050101
  6. PROCARDIA [Concomitant]
     Dosage: 30 MG
     Route: 048
     Dates: start: 20050101

REACTIONS (1)
  - OROPHARYNGEAL PAIN [None]
